FAERS Safety Report 7720433-5 (Version None)
Quarter: 2011Q3

REPORT INFORMATION
  Report Type: 
  Country: None (occurrence: None)
  Receive Date: 20110831
  Receipt Date: 20110816
  Transmission Date: 20111222
  Serious: Yes (Hospitalization)
  Sender: FDA-Public Use
  Company Number: US-SANOFI-AVENTIS-2011SA055610

PATIENT
  Sex: Female

DRUGS (1)
  1. ALLEGRA [Suspect]
     Route: 048

REACTIONS (1)
  - VERTIGO [None]
